FAERS Safety Report 4352252-4 (Version None)
Quarter: 2004Q2

REPORT INFORMATION
  Report Type: 
  Country: None (occurrence: None)
  Receive Date: 20040428
  Receipt Date: 20040419
  Transmission Date: 20050107
  Serious: Yes (Other)
  Sender: FDA-Public Use
  Company Number: BE-JNJFOC-20040404517

PATIENT
  Age: 5 Year
  Sex: Female

DRUGS (1)
  1. PREPULSID (CISAPRIDE) SUSPENSION [Suspect]
     Indication: GASTROOESOPHAGEAL REFLUX DISEASE
     Dosage: 4 MG, 3 IN 1 DAY
     Dates: start: 20030918

REACTIONS (1)
  - FUNDOPLICATION [None]
